FAERS Safety Report 4812171-3 (Version None)
Quarter: 2005Q4

REPORT INFORMATION
  Report Type: 
  Country: None (occurrence: None)
  Receive Date: 20051027
  Receipt Date: 20051027
  Transmission Date: 20060501
  Serious: Yes (Hospitalization)
  Sender: FDA-Public Use
  Company Number: None

PATIENT
  Age: 56 Year
  Sex: Male
  Weight: 63.5 kg

DRUGS (10)
  1. PROGRAF [Suspect]
     Indication: RENAL TRANSPLANT
     Dosage: 1 MG   BID   PO
     Route: 048
     Dates: start: 20040501
  2. TRIMETHOPRIM-SULFAMETHOXAZOLE [Concomitant]
  3. FAMOTIDINE [Concomitant]
  4. RANITIDINE [Concomitant]
  5. TAMSULOSIN [Concomitant]
  6. AMLODIPINE [Concomitant]
  7. LANSOPRAZOLE [Concomitant]
  8. LOSARTAN [Concomitant]
  9. METOCLOPRAMIDE [Concomitant]
  10. LEVOFLOXACIN [Concomitant]

REACTIONS (1)
  - PANCYTOPENIA [None]
